FAERS Safety Report 5572150-8 (Version None)
Quarter: 2007Q4

REPORT INFORMATION
  Report Type: 
  Country: None (occurrence: None)
  Receive Date: 20071221
  Receipt Date: 20071218
  Transmission Date: 20080405
  Serious: Yes (Death, Hospitalization, Other)
  Sender: FDA-Public Use
  Company Number: FR-GILEAD-2007-0012772

PATIENT
  Sex: Male
  Weight: 54 kg

DRUGS (10)
  1. TRUVADA [Suspect]
     Indication: HIV INFECTION
     Route: 048
     Dates: start: 20070518, end: 20070716
  2. TRUVADA [Suspect]
     Route: 048
     Dates: start: 20070904, end: 20071109
  3. KALETRA [Suspect]
     Indication: HIV INFECTION
     Route: 048
     Dates: start: 20070518, end: 20070716
  4. KALETRA [Suspect]
     Route: 048
     Dates: start: 20070904, end: 20071109
  5. FUZEON [Suspect]
     Indication: HIV INFECTION
     Route: 058
     Dates: start: 20070518, end: 20070716
  6. ROVALCYTE [Suspect]
     Indication: PROPHYLAXIS
     Route: 048
     Dates: start: 20070614, end: 20070712
  7. BACTRIM [Concomitant]
     Indication: PROPHYLAXIS
     Route: 048
     Dates: start: 20070821, end: 20071109
  8. TRIFLUCAN [Concomitant]
     Route: 048
     Dates: start: 20070716, end: 20071109
  9. AZADOSE [Concomitant]
     Dates: start: 20070716, end: 20071109
  10. LEDERFOLINE [Concomitant]
     Dates: start: 20070604, end: 20071109

REACTIONS (4)
  - ANAEMIA [None]
  - CARDIAC ARREST [None]
  - CARDIOMYOPATHY [None]
  - FEBRILE NEUTROPENIA [None]
